FAERS Safety Report 17522090 (Version 1)
Quarter: 2020Q1

REPORT INFORMATION
  Report Type: Spontaneous
  Country: GB (occurrence: GB)
  Receive Date: 20200310
  Receipt Date: 20200310
  Transmission Date: 20200409
  Serious: Yes (Other)
  Sender: FDA-Public Use
  Company Number: GB-MYLANLABS-2020M1024940

PATIENT
  Age: 15 Year
  Sex: Male
  Weight: 80 kg

DRUGS (1)
  1. ISOTRETINOIN. [Suspect]
     Active Substance: ISOTRETINOIN
     Indication: ACNE FULMINANS
     Dosage: 40 MILLIGRAM
     Route: 048
     Dates: start: 20190821

REACTIONS (5)
  - Acne [Unknown]
  - Malaise [Unknown]
  - Pain [Unknown]
  - Acne fulminans [Not Recovered/Not Resolved]
  - Inflammation [Recovering/Resolving]

NARRATIVE: CASE EVENT DATE: 20190821
